FAERS Safety Report 9146393 (Version 1)
Quarter: 2013Q1

REPORT INFORMATION
  Report Type: Spontaneous
  Country: US (occurrence: None)
  Receive Date: 20130227
  Receipt Date: 20130227
  Transmission Date: 20140127
  Serious: No
  Sender: FDA-Public Use
  Company Number: None

PATIENT
  Sex: Female
  Weight: 70.4 kg

DRUGS (3)
  1. 5-FLUOROURACIL (5-FU) [Suspect]
     Dates: end: 20120711
  2. LEUCOVORIN CALCIUM [Suspect]
     Dates: end: 20120709
  3. OXALIPLATIN (ELOXATIN) [Suspect]
     Dates: end: 20120709

REACTIONS (1)
  - Embolism venous [None]
